FAERS Safety Report 5094139-8 (Version None)
Quarter: 2006Q3

REPORT INFORMATION
  Report Type: 
  Country: None (occurrence: None)
  Receive Date: 20060831
  Receipt Date: 20060509
  Transmission Date: 20061208
  Serious: Yes (Hospitalization)
  Sender: FDA-Public Use
  Company Number: PHBS2006AT07027

PATIENT
  Age: 61 Year
  Sex: Male

DRUGS (8)
  1. AREDIA [Suspect]
     Indication: MULTIPLE MYELOMA
     Dosage: UNK, UNK
     Route: 065
     Dates: start: 19970101
  2. THROMBO [Concomitant]
     Dosage: UNK, QD
     Route: 065
  3. DANCOR [Concomitant]
     Route: 065
  4. ZOCORD [Concomitant]
     Dosage: 40 MG, QD
     Route: 065
  5. UROCARD [Concomitant]
     Dosage: 5 MG, QD
     Route: 065
  6. MYOCARD [Concomitant]
     Dosage: UNK, QD
     Route: 065
  7. NORVASC [Concomitant]
     Dosage: 5 MG, QD
     Route: 065
  8. CONCOR [Concomitant]
     Dosage: 5 MG, BID

REACTIONS (6)
  - ACTINOMYCOSIS [None]
  - BONE DEBRIDEMENT [None]
  - BONE TRIMMING [None]
  - OSTEOMYELITIS [None]
  - SEQUESTRECTOMY [None]
  - TOOTH EXTRACTION [None]
